FAERS Safety Report 6171773-5 (Version None)
Quarter: 2009Q2

REPORT INFORMATION
  Report Type: 
  Country: None (occurrence: None)
  Receive Date: 20090424
  Receipt Date: 20090108
  Transmission Date: 20091009
  Serious: No
  Sender: FDA-Public Use
  Company Number: SPV1-2009-00037

PATIENT
  Sex: Male

DRUGS (1)
  1. VYVANSE [Suspect]
     Dosage: 70 MG

REACTIONS (3)
  - CONDITION AGGRAVATED [None]
  - ERECTILE DYSFUNCTION [None]
  - HYPERTENSION [None]
